FAERS Safety Report 9169331 (Version 1)
Quarter: 2013Q1

REPORT INFORMATION
  Report Type: Spontaneous
  Country: TR (occurrence: TR)
  Receive Date: 20130318
  Receipt Date: 20130318
  Transmission Date: 20140127
  Serious: Yes (Hospitalization)
  Sender: FDA-Public Use
  Company Number: TR-BAYER-2013-030314

PATIENT
  Age: 1 Day
  Sex: Female
  Weight: 1.65 kg

DRUGS (6)
  1. NIFEDIPINE [Suspect]
     Route: 064
  2. NIFEDIPINE [Suspect]
     Route: 064
  3. BETAMETHASONE [Suspect]
     Route: 064
  4. BETAMETHASONE [Suspect]
     Route: 064
  5. CISPLATIN [Suspect]
     Route: 064
  6. CISPLATIN [Suspect]
     Route: 064

REACTIONS (5)
  - Premature baby [Recovered/Resolved]
  - Low birth weight baby [None]
  - Foetal exposure during pregnancy [None]
  - Maternal drugs affecting foetus [None]
  - Caesarean section [None]
